FAERS Safety Report 8107000-9 (Version None)
Quarter: 2012Q1

REPORT INFORMATION
  Report Type: 
  Country: None (occurrence: None)
  Receive Date: 20120202
  Receipt Date: 20120202
  Transmission Date: 20120608
  Serious: Yes (Other)
  Sender: FDA-Public Use
  Company Number: None

PATIENT
  Age: 5 Year
  Sex: Male
  Weight: 17.236 kg

DRUGS (1)
  1. XYZAL [Suspect]
     Indication: MULTIPLE ALLERGIES
     Dosage: 1.5 TSP
     Route: 048
     Dates: start: 20120131, end: 20120131

REACTIONS (7)
  - NIGHTMARE [None]
  - ABNORMAL DREAMS [None]
  - RESTLESSNESS [None]
  - MEDICATION ERROR [None]
  - INCORRECT DOSE ADMINISTERED [None]
  - AGGRESSION [None]
  - ABNORMAL BEHAVIOUR [None]
